FAERS Safety Report 4505511-6 (Version None)
Quarter: 2004Q4

REPORT INFORMATION
  Report Type: 
  Country: None (occurrence: None)
  Receive Date: 20041119
  Receipt Date: 20041108
  Transmission Date: 20050328
  Serious: Yes (Other)
  Sender: FDA-Public Use
  Company Number: AR-ROCHE-385726

PATIENT
  Sex: Female

DRUGS (3)
  1. XELODA [Suspect]
     Indication: COLON CANCER
     Route: 048
     Dates: start: 20040831, end: 20040915
  2. XELODA [Suspect]
     Route: 048
     Dates: start: 20040922, end: 20041007
  3. XELODA [Suspect]
     Route: 048
     Dates: start: 20041012, end: 20041014

REACTIONS (4)
  - ARTHRALGIA [None]
  - EYELID CYST [None]
  - SWELLING FACE [None]
  - VITREOUS DISORDER [None]
